FAERS Safety Report 14454750 (Version 1)
Quarter: 2018Q1

REPORT INFORMATION
  Report Type: Spontaneous
  Country: US (occurrence: US)
  Receive Date: 20180129
  Receipt Date: 20180129
  Transmission Date: 20180509
  Serious: Yes (Hospitalization, Other)
  Sender: FDA-Public Use
  Company Number: US-DSJP-DSU-2017-137124

PATIENT

DRUGS (1)
  1. BENICAR HCT [Suspect]
     Active Substance: HYDROCHLOROTHIAZIDE\OLMESARTAN MEDOXOMIL
     Dosage: 40-12.5, UNK
     Dates: start: 20091211, end: 20150103

REACTIONS (6)
  - Polyp [Unknown]
  - Gastrooesophageal reflux disease [Unknown]
  - Haematochezia [Unknown]
  - Sprue-like enteropathy [Recovering/Resolving]
  - Ulcer [Unknown]
  - Diverticulum [Unknown]

NARRATIVE: CASE EVENT DATE: 20110127
